FAERS Safety Report 5725923-2 (Version None)
Quarter: 2008Q2

REPORT INFORMATION
  Report Type: 
  Country: None (occurrence: None)
  Receive Date: 20080429
  Receipt Date: 20080414
  Transmission Date: 20081010
  Serious: Yes (Death, Hospitalization, Other)
  Sender: FDA-Public Use
  Company Number: 47390

PATIENT
  Age: 77 Year
  Sex: Male

DRUGS (1)
  1. FLUCONAZOLE [Suspect]

REACTIONS (2)
  - MULTI-ORGAN FAILURE [None]
  - RHABDOMYOLYSIS [None]
